FAERS Safety Report 15023637 (Version 1)
Quarter: 2018Q2

REPORT INFORMATION
  Report Type: Spontaneous
  Country: GB (occurrence: GB)
  Receive Date: 20180618
  Receipt Date: 20180618
  Transmission Date: 20180711
  Serious: Yes (Death)
  Sender: FDA-Public Use
  Company Number: GB-ASTRAZENECA-2018SE72502

PATIENT
  Sex: Female

DRUGS (2)
  1. LYNPARZA [Suspect]
     Active Substance: OLAPARIB
     Indication: OVARIAN CANCER
     Dosage: 3/4 OF MAX. DOSE IN COMBINATION WITH DOXORUBICIN OF THREE TIMES NORMAL DOSE
     Route: 048
  2. DOXORUBICIN [Suspect]
     Active Substance: DOXORUBICIN
     Route: 065

REACTIONS (4)
  - Malignant neoplasm progression [Fatal]
  - Product use issue [Unknown]
  - Overdose [Fatal]
  - Off label use [Unknown]
